FAERS Safety Report 7827694-2 (Version None)
Quarter: 2011Q4

REPORT INFORMATION
  Report Type: 
  Country: None (occurrence: None)
  Receive Date: 20111020
  Receipt Date: 20111017
  Transmission Date: 20120403
  Serious: Yes (Life-Threatening, Hospitalization, Other)
  Sender: FDA-Public Use
  Company Number: DE-JNJFOC-20110910523

PATIENT
  Sex: Male
  Weight: 19.7 kg

DRUGS (14)
  1. PANTOPRAZOLE SODIUM [Concomitant]
     Indication: PROPHYLAXIS AGAINST GASTROINTESTINAL ULCER
     Route: 065
     Dates: start: 20110822, end: 20110829
  2. CEFTAZIDIME SODIUM [Concomitant]
     Indication: INFECTION
     Route: 065
     Dates: start: 20110825, end: 20110830
  3. VINORELBINE [Concomitant]
     Indication: RHABDOID TUMOUR OF THE KIDNEY
     Route: 042
     Dates: start: 20110825, end: 20110825
  4. METRONIDAZOLE [Concomitant]
     Indication: CLOSTRIDIUM TEST POSITIVE
     Dosage: 3X200 MG
     Route: 048
     Dates: start: 20110824, end: 20110831
  5. DOXORUBICIN HCL [Suspect]
     Indication: RHABDOID TUMOUR OF THE KIDNEY
     Route: 042
     Dates: start: 20110825, end: 20110825
  6. VINORELBINE [Concomitant]
     Route: 042
     Dates: start: 20110901, end: 20110901
  7. TAZOBAC [Concomitant]
     Indication: INFECTION
     Dosage: 3 X 1.6 G
     Route: 065
     Dates: start: 20110819, end: 20110825
  8. ZOFRAN [Concomitant]
     Indication: ANTIEMETIC SUPPORTIVE CARE
     Dosage: 3X3 MG
     Route: 042
     Dates: start: 20110825, end: 20110826
  9. VANCOMYCIN HCL [Concomitant]
     Indication: INFECTION
     Dosage: 3X200 MG
     Route: 065
     Dates: start: 20110825, end: 20110830
  10. ACETAMINOPHEN [Concomitant]
     Indication: PYREXIA
     Route: 065
     Dates: start: 20110825
  11. VALPROATE SODIUM [Concomitant]
     Indication: RHABDOID TUMOUR OF THE KIDNEY
     Dosage: 3X250 MG
     Route: 048
     Dates: start: 20110622
  12. GENTAMICIN [Concomitant]
     Indication: INFECTION
     Dosage: 3 X 40 MG
     Route: 065
     Dates: start: 20110819, end: 20110825
  13. AMPHOTERICIN B [Concomitant]
     Indication: INFECTION PROPHYLAXIS
     Dosage: 3X2 ML
     Route: 048
     Dates: start: 20110622
  14. KEPINOL [Concomitant]
     Indication: INFECTION PROPHYLAXIS
     Route: 048
     Dates: start: 20110622

REACTIONS (7)
  - RESPIRATORY FAILURE [None]
  - OFF LABEL USE [None]
  - HYPOTENSION [None]
  - PULMONARY OEDEMA [None]
  - TOXIC EPIDERMAL NECROLYSIS [None]
  - SKIN TOXICITY [None]
  - HYPOTHERMIA [None]
